FAERS Safety Report 7950531-2 (Version None)
Quarter: 2011Q4

REPORT INFORMATION
  Report Type: 
  Country: None (occurrence: None)
  Receive Date: 20111130
  Receipt Date: 20111125
  Transmission Date: 20120403
  Serious: Yes (Death, Life-Threatening, Other)
  Sender: FDA-Public Use
  Company Number: JP-ROCHE-1009390

PATIENT
  Sex: Male
  Weight: 52 kg

DRUGS (10)
  1. FLUOROURACIL [Concomitant]
     Route: 040
     Dates: start: 20110427, end: 20111007
  2. ETODOLAC [Suspect]
     Indication: CANCER PAIN
     Route: 048
     Dates: start: 20111013, end: 20111017
  3. OXALIPLATIN [Concomitant]
     Indication: COLON CANCER RECURRENT
     Route: 041
     Dates: start: 20110427, end: 20111007
  4. FENTANYL CITRATE [Concomitant]
     Indication: CANCER PAIN
     Route: 062
     Dates: start: 20110602, end: 20111022
  5. FENTANYL CITRATE [Concomitant]
     Route: 062
     Dates: start: 20111023, end: 20111101
  6. FLUOROURACIL [Concomitant]
     Indication: COLON CANCER RECURRENT
     Route: 041
     Dates: start: 20110427, end: 20111007
  7. LYRICA [Concomitant]
     Indication: CANCER PAIN
     Route: 048
     Dates: start: 20110811, end: 20111003
  8. LEVOLEUCOVORIN CALCIUM [Concomitant]
     Indication: COLON CANCER RECURRENT
     Route: 041
     Dates: start: 20110427, end: 20111007
  9. LYRICA [Concomitant]
     Route: 048
     Dates: start: 20111004, end: 20111025
  10. AVASTIN [Suspect]
     Indication: COLON CANCER RECURRENT
     Route: 041
     Dates: start: 20110511, end: 20111007

REACTIONS (3)
  - DUODENAL ULCER HAEMORRHAGE [None]
  - PNEUMONIA [None]
  - PNEUMONIA ASPIRATION [None]
